FAERS Safety Report 4924782-5 (Version None)
Quarter: 2006Q1

REPORT INFORMATION
  Report Type: 
  Country: None (occurrence: None)
  Receive Date: 20060222
  Receipt Date: 20060209
  Transmission Date: 20060701
  Serious: Yes (Hospitalization)
  Sender: FDA-Public Use
  Company Number: 2005-07-1669

PATIENT
  Age: 65 Year
  Sex: Male
  Weight: 55 kg

DRUGS (8)
  1. PEG-INTERON (PEGINTERFERON ALFA-2B) INJECTABLE POWDER [Suspect]
     Indication: HEPATITIS C
     Dosage: 80 MCG QW* SUBCUTANEOUS
     Route: 058
     Dates: start: 20050318, end: 20050715
  2. PEG-INTERON (PEGINTERFERON ALFA-2B) INJECTABLE POWDER [Suspect]
     Indication: HEPATITIS C
     Dosage: 80 MCG QW* SUBCUTANEOUS
     Route: 058
     Dates: start: 20050318
  3. REBETOL [Suspect]
     Indication: HEPATITIS C
     Dosage: 600-400*MG, ORAL
     Route: 048
     Dates: start: 20050318, end: 20050414
  4. REBETOL [Suspect]
     Indication: HEPATITIS C
     Dosage: 600-400*MG, ORAL
     Route: 048
     Dates: start: 20050415, end: 20050720
  5. REBETOL [Suspect]
     Indication: HEPATITIS C
     Dosage: 600-400*MG, ORAL
     Route: 048
     Dates: start: 20050318
  6. REBETOL [Suspect]
     Indication: HEPATITIS C
     Dosage: 600-400*MG, ORAL
     Route: 048
     Dates: start: 20051107
  7. AMLODIPINE BESILATE TABLETS [Concomitant]
  8. BLOPRESS (CANDESARTAN CILEXETIL) TABLETS [Concomitant]

REACTIONS (2)
  - DIZZINESS [None]
  - NAUSEA [None]
